FAERS Safety Report 5605876-8 (Version None)
Quarter: 2008Q1

REPORT INFORMATION
  Report Type: 
  Country: None (occurrence: None)
  Receive Date: 20080129
  Receipt Date: 20080122
  Transmission Date: 20080703
  Serious: Yes (Other)
  Sender: FDA-Public Use
  Company Number: BR-ASTRAZENECA-2008UW01812

PATIENT
  Age: 43 Year
  Sex: Male

DRUGS (1)
  1. SYMBICORT [Suspect]
     Indication: ASTHMA
     Dosage: 320/9 UG TWICE DAILY
     Route: 055
     Dates: start: 20070901

REACTIONS (1)
  - DYSPNOEA [None]
